FAERS Safety Report 8333432-X (Version None)
Quarter: 2012Q1

REPORT INFORMATION
  Report Type: 
  Country: None (occurrence: None)
  Receive Date: 20120329
  Receipt Date: 20100316
  Transmission Date: 20120608
  Serious: Yes (Hospitalization, Other)
  Sender: FDA-Public Use
  Company Number: PHHY2010US16779

PATIENT

DRUGS (5)
  1. HYDROCHLOROTHIAZIDE [Concomitant]
  2. ZIAC [Concomitant]
  3. ASPIRIN [Concomitant]
  4. EXELON [Suspect]
     Dosage: 6 MG, DAILY, ORAL
     Route: 048
     Dates: start: 20090912
  5. CRESTOR [Concomitant]

REACTIONS (2)
  - ATRIOVENTRICULAR BLOCK COMPLETE [None]
  - CARDIAC PACEMAKER INSERTION [None]
